FAERS Safety Report 8580232-1 (Version None)
Quarter: 2012Q3

REPORT INFORMATION
  Report Type: 
  Country: None (occurrence: None)
  Receive Date: 20120808
  Receipt Date: 20120806
  Transmission Date: 20120928
  Serious: Yes (Hospitalization, Other)
  Sender: FDA-Public Use
  Company Number: US-PFIZER INC-2012190910

PATIENT
  Age: 51 Year
  Sex: Female
  Weight: 81.633 kg

DRUGS (5)
  1. LANTUS [Concomitant]
     Indication: DIABETES MELLITUS
     Dosage: 32 IU,DAILY
  2. EFFIENT [Concomitant]
     Indication: CARDIAC DISORDER
     Dosage: 10 MG, DAILY
  3. LIPITOR [Suspect]
     Indication: BLOOD CHOLESTEROL INCREASED
     Dosage: 10 MG, DAILY
  4. METFORMIN [Concomitant]
     Indication: DIABETES MELLITUS
     Dosage: 500 MG, 3X/DAY
  5. LISINOPRIL [Concomitant]
     Indication: HYPERTENSION
     Dosage: 10 MG, DAILY

REACTIONS (3)
  - CORONARY ARTERY OCCLUSION [None]
  - ANGINA PECTORIS [None]
  - AMNESIA [None]
